FAERS Safety Report 13070106 (Version 9)
Quarter: 2017Q2

REPORT INFORMATION
  Report Type: Report from Study
  Country: US (occurrence: US)
  Receive Date: 20161228
  Receipt Date: 20170630
  Transmission Date: 20170830
  Serious: Yes (Hospitalization)
  Sender: FDA-Public Use
  Company Number: US-ACTELION-A-US2016-144246

PATIENT
  Age: 62 Year
  Sex: Male
  Weight: 82.86 kg

DRUGS (5)
  1. VELETRI [Suspect]
     Active Substance: EPOPROSTENOL
     Indication: PULMONARY ARTERIAL HYPERTENSION
     Dosage: 7 NG/KG, PER MIN
     Route: 042
     Dates: start: 20161017
  2. VELETRI [Suspect]
     Active Substance: EPOPROSTENOL
     Dosage: 13 NG/KG, PER MIN
     Route: 042
  3. REVATIO [Concomitant]
     Active Substance: SILDENAFIL CITRATE
  4. OXYGEN. [Concomitant]
     Active Substance: OXYGEN
  5. VELETRI [Suspect]
     Active Substance: EPOPROSTENOL
     Dosage: 19 NG/KG, PER MIN
     Route: 042

REACTIONS (42)
  - Carotid artery perforation [Unknown]
  - Headache [Unknown]
  - Myalgia [Unknown]
  - Catheterisation cardiac [Unknown]
  - Thoracostomy [Unknown]
  - Device malfunction [Unknown]
  - Device leakage [Recovered/Resolved]
  - Pulmonary congestion [Unknown]
  - Abdominal pain upper [Unknown]
  - Myocardial infarction [Unknown]
  - Skin irritation [Unknown]
  - Lung perforation [Unknown]
  - Nausea [Unknown]
  - Rash [Unknown]
  - Hypotension [Unknown]
  - Post procedural complication [Unknown]
  - Cardio-respiratory arrest [Unknown]
  - Blood potassium decreased [Unknown]
  - Chest pain [Unknown]
  - Vomiting [Unknown]
  - Pain in jaw [Unknown]
  - Feeling abnormal [Unknown]
  - Dizziness [Unknown]
  - Arthritis [Unknown]
  - Haematuria [Unknown]
  - Device infusion issue [Unknown]
  - Dermatitis contact [Unknown]
  - Malaise [Recovering/Resolving]
  - Decreased appetite [Unknown]
  - Arthralgia [Unknown]
  - Epistaxis [Unknown]
  - Chest discomfort [Unknown]
  - Dyspnoea [Unknown]
  - Blood pressure increased [Unknown]
  - Venous perforation [Unknown]
  - Cardiac arrest [Unknown]
  - Flushing [Unknown]
  - Blood urine present [Unknown]
  - Diarrhoea [Unknown]
  - Productive cough [Unknown]
  - Blood pressure systolic decreased [Unknown]
  - Heart rate irregular [Unknown]
